FAERS Safety Report 23107627 (Version 1)
Quarter: 2023Q4

REPORT INFORMATION
  Report Type: Report from Study
  Country: US (occurrence: US)
  Receive Date: 20231026
  Receipt Date: 20231026
  Transmission Date: 20240110
  Serious: No
  Sender: FDA-Public Use
  Company Number: US-002147023-NVSC2023US228207

PATIENT
  Sex: Female

DRUGS (1)
  1. ILARIS [Suspect]
     Active Substance: CANAKINUMAB
     Indication: Familial mediterranean fever
     Dosage: 225 MG, Q4W
     Route: 058
     Dates: start: 20180501

REACTIONS (2)
  - Pharyngitis streptococcal [Unknown]
  - Inappropriate schedule of product administration [Unknown]
